FAERS Safety Report 6152752-0 (Version None)
Quarter: 2009Q2

REPORT INFORMATION
  Report Type: 
  Country: None (occurrence: None)
  Receive Date: 20090413
  Receipt Date: 20090408
  Transmission Date: 20091009
  Serious: Yes (Hospitalization, Other)
  Sender: FDA-Public Use
  Company Number: US-ROCHE-552268

PATIENT
  Sex: Female
  Weight: 59 kg

DRUGS (1)
  1. ACCUTANE [Suspect]
     Route: 065
     Dates: start: 19961121, end: 19970415

REACTIONS (11)
  - ANXIETY [None]
  - ARTHRITIS ENTEROPATHIC [None]
  - BLOOD CHOLESTEROL INCREASED [None]
  - BLOOD TRIGLYCERIDES INCREASED [None]
  - CROHN'S DISEASE [None]
  - DEPRESSION [None]
  - DRY SKIN [None]
  - ERYTHEMA NODOSUM [None]
  - INFLAMMATORY BOWEL DISEASE [None]
  - INTESTINAL OBSTRUCTION [None]
  - RASH [None]
